FAERS Safety Report 8788769 (Version 1)
Quarter: 2012Q4

REPORT INFORMATION
  Report Type: 
  Country: US (occurrence: US)
  Receive Date: 20120917
  Receipt Date: 20120917
  Transmission Date: 20130627
  Serious: No
  Sender: FDA-Public Use
  Company Number: US-JNJFOC-20120902086

PATIENT
  Age: 47 None
  Sex: Male
  Weight: 104.33 kg

DRUGS (5)
  1. SANDOZ FENTANYL TRANSDERMAL SYSTEM [Suspect]
     Indication: PAIN
     Route: 062
     Dates: start: 20120815
  2. TRAMADOL HYDROCHLORIDE [Concomitant]
     Indication: NEURALGIA
     Dosage: 50 mg tablet
     Route: 048
     Dates: start: 20120815
  3. OMEPRAZOLE [Concomitant]
     Indication: GASTROOESOPHAGEAL REFLUX DISEASE
     Route: 048
     Dates: start: 201206
  4. SENNA S [Concomitant]
     Indication: ABNORMAL FAECES
     Dosage: 8.6 mg tablet
     Route: 048
     Dates: start: 2011
  5. TAMSULOSIN [Concomitant]
     Indication: DYSURIA
     Route: 048
     Dates: start: 201206

REACTIONS (6)
  - Application site burn [Recovering/Resolving]
  - Application site vesicles [Recovering/Resolving]
  - Wrong technique in drug usage process [Unknown]
  - Product quality issue [Unknown]
  - Wrong technique in drug usage process [Not Recovered/Not Resolved]
  - Wrong technique in drug usage process [Not Recovered/Not Resolved]
